FAERS Safety Report 4660809-6 (Version None)
Quarter: 2005Q2

REPORT INFORMATION
  Report Type: 
  Country: None (occurrence: None)
  Receive Date: 20050511
  Receipt Date: 20050422
  Transmission Date: 20051028
  Serious: Yes (Other)
  Sender: FDA-Public Use
  Company Number: 004-050422

PATIENT
  Age: 57 Year
  Sex: Female
  Weight: 45.3597 kg

DRUGS (1)
  1. CHLORHEXIDINE GLUCONATE [Suspect]
     Indication: GINGIVITIS
     Dosage: 0.12% CHG, HS, ORAL
     Route: 048
     Dates: start: 20050301

REACTIONS (2)
  - LOCALISED OEDEMA [None]
  - PHARYNGEAL OEDEMA [None]
